FAERS Safety Report 5139689-0 (Version None)
Quarter: 2006Q4

REPORT INFORMATION
  Report Type: 
  Country: None (occurrence: None)
  Receive Date: 20061024
  Receipt Date: 20061012
  Transmission Date: 20070319
  Serious: Yes (Hospitalization)
  Sender: FDA-Public Use
  Company Number: 2006124601

PATIENT
  Sex: Male

DRUGS (1)
  1. LISTERINE (MENTHOL, METHYL SALICYLATE, EUCALYPTOL, THYMOL) [Suspect]
     Dosage: 2 BOTTLES DAILY, ORAL
     Route: 048
     Dates: start: 20030101

REACTIONS (3)
  - ABDOMINAL DISTENSION [None]
  - CONVULSION [None]
  - VISUAL DISTURBANCE [None]
